FAERS Safety Report 5619328-2 (Version None)
Quarter: 2008Q1

REPORT INFORMATION
  Report Type: 
  Country: None (occurrence: None)
  Receive Date: 20080114
  Receipt Date: 20070321
  Transmission Date: 20080703
  Serious: Yes (Hospitalization)
  Sender: FDA-Public Use
  Company Number: A03200702187

PATIENT
  Age: 59 Year
  Sex: Male
  Weight: 55.33 kg

DRUGS (4)
  1. PLAVIX [Suspect]
     Indication: ANTICOAGULANT THERAPY
     Dosage: 75 MG QD - ORAL
     Route: 048
     Dates: start: 20010501, end: 20070214
  2. METOPROLOL SUCCINATE [Concomitant]
  3. FOSINOPRIL SODIUM [Concomitant]
  4. TRIAMTERENE [Concomitant]

REACTIONS (2)
  - BLOOD URINE PRESENT [None]
  - GENITAL HAEMORRHAGE [None]
